FAERS Safety Report 9768179 (Version 1)
Quarter: 2013Q4

REPORT INFORMATION
  Report Type: Spontaneous
  Country: GB (occurrence: GB)
  Receive Date: 20131217
  Receipt Date: 20131217
  Transmission Date: 20140711
  Serious: Yes (Other)
  Sender: FDA-Public Use
  Company Number: GB-GLAXOSMITHKLINE-B0952262A

PATIENT
  Age: 35 Year
  Sex: Female
  Weight: 67.58 kg

DRUGS (4)
  1. SEROXAT [Suspect]
     Indication: BIPOLAR DISORDER
     Route: 048
  2. MIRTAZAPINE [Concomitant]
  3. DIAZEPAM [Concomitant]
  4. HALOPERIDOL [Concomitant]

REACTIONS (5)
  - Suicidal ideation [Not Recovered/Not Resolved]
  - Hyperhidrosis [Not Recovered/Not Resolved]
  - Tremor [Not Recovered/Not Resolved]
  - Anxiety [Not Recovered/Not Resolved]
  - Irritability [Not Recovered/Not Resolved]
